FAERS Safety Report 5680816-4 (Version None)
Quarter: 2008Q1

REPORT INFORMATION
  Report Type: 
  Country: None (occurrence: None)
  Receive Date: 20080326
  Receipt Date: 20080324
  Transmission Date: 20080703
  Serious: Yes (Other)
  Sender: FDA-Public Use
  Company Number: US-BOEHRINGER INGELHEIM GMBH, GERMANY-2008-BP-04484RO

PATIENT
  Age: 62 Year
  Sex: Male

DRUGS (8)
  1. LITHIUM CARBONATE [Suspect]
     Indication: BIPOLAR DISORDER
  2. LISINOPRIL [Concomitant]
  3. ATENOLOL [Concomitant]
  4. GEMFIBROZIL [Concomitant]
  5. HALOPERIDOL [Concomitant]
  6. QUETIAPINE FUMARATE [Concomitant]
  7. METFORMIN [Concomitant]
  8. BUPROPION SR [Concomitant]

REACTIONS (5)
  - NEPHRITIS INTERSTITIAL [None]
  - NEPHROGENIC DIABETES INSIPIDUS [None]
  - NEPHROTIC SYNDROME [None]
  - RENAL FAILURE CHRONIC [None]
  - THERAPEUTIC AGENT TOXICITY [None]
